FAERS Safety Report 21991097 (Version 1)
Quarter: 2023Q1

REPORT INFORMATION
  Report Type: Spontaneous
  Country: US (occurrence: None)
  Receive Date: 20230213
  Receipt Date: 20230213
  Transmission Date: 20230417
  Serious: Yes (Disabling)
  Sender: FDA-Public Use
  Company Number: None

PATIENT
  Age: 47 Year
  Sex: Male
  Weight: 69.75 kg

DRUGS (6)
  1. PREDNISONE [Suspect]
     Active Substance: PREDNISONE
     Indication: Ear inflammation
     Dates: start: 20220806, end: 20220813
  2. CLOBETASOL [Suspect]
     Active Substance: CLOBETASOL
     Indication: Psoriasis
     Dates: start: 20190801, end: 20230131
  3. FINASTERIDE [Concomitant]
     Active Substance: FINASTERIDE
  4. CIMETIDINE [Concomitant]
     Active Substance: CIMETIDINE
  5. DEVICE [Concomitant]
     Active Substance: DEVICE
  6. TUMS [Concomitant]
     Active Substance: CALCIUM CARBONATE

REACTIONS (1)
  - Central serous chorioretinopathy [None]

NARRATIVE: CASE EVENT DATE: 20230213
